FAERS Safety Report 9766203 (Version 1)
Quarter: 2013Q4

REPORT INFORMATION
  Report Type: Spontaneous
  Country: US (occurrence: US)
  Receive Date: 20131217
  Receipt Date: 20131217
  Transmission Date: 20140711
  Serious: No
  Sender: FDA-Public Use
  Company Number: US-GLAXOSMITHKLINE-A1022355A

PATIENT
  Age: 61 Year
  Sex: Male

DRUGS (3)
  1. VOTRIENT [Suspect]
     Indication: RENAL CELL CARCINOMA
     Dosage: 800MG PER DAY
     Route: 048
     Dates: start: 20130413
  2. ONDANSETRON [Concomitant]
  3. LORAZEPAM [Concomitant]

REACTIONS (4)
  - Peripheral coldness [Not Recovered/Not Resolved]
  - Nausea [Unknown]
  - Blood pressure increased [Unknown]
  - Decreased appetite [Unknown]
